FAERS Safety Report 9958098 (Version 1)
Quarter: 2014Q1

REPORT INFORMATION
  Report Type: Report from Study
  Country: US (occurrence: US)
  Receive Date: 20140304
  Receipt Date: 20140304
  Transmission Date: 20141002
  Serious: No
  Sender: FDA-Public Use
  Company Number: US-ABBVIE-13P-163-1091491-00

PATIENT
  Age: 56 Year
  Sex: Female

DRUGS (4)
  1. HUMIRA [Suspect]
     Indication: COLITIS ULCERATIVE
     Dates: start: 200610
  2. LIALDA [Concomitant]
     Indication: COLITIS ULCERATIVE
  3. MODERETIC [Concomitant]
     Indication: BLOOD CALCIUM DECREASED
  4. FOSAMAX [Concomitant]
     Indication: OSTEOPOROSIS

REACTIONS (5)
  - Sputum discoloured [Not Recovered/Not Resolved]
  - Viral infection [Recovering/Resolving]
  - Ear infection [Recovering/Resolving]
  - Cough [Not Recovered/Not Resolved]
  - Pain [Recovering/Resolving]
